FAERS Safety Report 10795072 (Version 1)
Quarter: 2015Q1

REPORT INFORMATION
  Report Type: Spontaneous
  Country: US (occurrence: US)
  Receive Date: 20150214
  Receipt Date: 20150214
  Transmission Date: 20150721
  Serious: No
  Sender: FDA-Public Use
  Company Number: US-GLAXOSMITHKLINE-A1085716A

PATIENT

DRUGS (4)
  1. ADVIL [Concomitant]
     Active Substance: IBUPROFEN
  2. ALBUTEROL NEBULIZED [Concomitant]
     Active Substance: ALBUTEROL
  3. FLOVENT [Suspect]
     Active Substance: FLUTICASONE PROPIONATE
     Indication: PNEUMONITIS
     Dosage: INH 220MCG
     Route: 055
     Dates: start: 201403
  4. ALBUTEROL INHALER [Concomitant]
     Active Substance: ALBUTEROL

REACTIONS (4)
  - Asthenia [Unknown]
  - Dizziness [Not Recovered/Not Resolved]
  - Dyspnoea [Unknown]
  - Nausea [Unknown]

NARRATIVE: CASE EVENT DATE: 201403
